FAERS Safety Report 16097630 (Version 1)
Quarter: 2019Q1

REPORT INFORMATION
  Report Type: Spontaneous
  Country: US (occurrence: US)
  Receive Date: 20190320
  Receipt Date: 20190320
  Transmission Date: 20190418
  Serious: No
  Sender: FDA-Public Use
  Company Number: US-MERZ NORTH AMERICA, INC.-19MRZ-00119

PATIENT
  Sex: Female

DRUGS (1)
  1. XEOMIN [Suspect]
     Active Substance: INCOBOTULINUMTOXINA
     Indication: SKIN COSMETIC PROCEDURE
     Dosage: 18 UNITS?^5UNITS/0.1CC BACTERIOSTATIC 0.9% SALINE^
     Route: 030
     Dates: start: 20181218, end: 20181218

REACTIONS (2)
  - Hypersensitivity [Recovered/Resolved]
  - Macule [Recovered/Resolved]
